FAERS Safety Report 6158394-5 (Version None)
Quarter: 2009Q2

REPORT INFORMATION
  Report Type: 
  Country: None (occurrence: None)
  Receive Date: 20090417
  Receipt Date: 20070326
  Transmission Date: 20091009
  Serious: Yes (Hospitalization, Disabling, Other)
  Sender: FDA-Public Use
  Company Number: US-ASTRAZENECA-2006UW10915

PATIENT
  Age: 23996 Day
  Sex: Female
  Weight: 90.7 kg

DRUGS (28)
  1. SEROQUEL [Suspect]
     Indication: DEPRESSION
     Dosage: 25-50MG
     Route: 048
     Dates: start: 20030429
  2. ZYPREXA [Suspect]
  3. PROTONIX [Concomitant]
  4. DOXEPIN HCL [Concomitant]
  5. LEXAPRO [Concomitant]
  6. LIPITOR [Concomitant]
  7. CELEBREX [Concomitant]
  8. MELLARIL [Concomitant]
  9. LEVAQUIN [Concomitant]
  10. SYNTHROID [Concomitant]
  11. SULAR [Concomitant]
  12. HYDROCHLOROTHIAZIDE [Concomitant]
  13. DEPAKOTE [Concomitant]
  14. TORADOL [Concomitant]
  15. CALTRATE [Concomitant]
  16. REMERON [Concomitant]
  17. DIOVAN [Concomitant]
  18. TYLENOL [Concomitant]
  19. RESTORIL [Concomitant]
  20. PHENERGAN [Concomitant]
  21. STELAZINE [Concomitant]
  22. ROCEPHIN [Concomitant]
  23. LABETALOL HCL [Concomitant]
  24. PYRIDIUM [Concomitant]
  25. GLUCOPHAGE [Concomitant]
  26. AMILORIDE HYDROCHLORIDE [Concomitant]
  27. NORVASC [Concomitant]
  28. ASPIRIN [Concomitant]

REACTIONS (36)
  - ACUTE PRERENAL FAILURE [None]
  - ANXIETY [None]
  - BRONCHOSPASM [None]
  - CHOLECYSTITIS ACUTE [None]
  - CHOLELITHIASIS [None]
  - DELUSIONAL DISORDER, PERSECUTORY TYPE [None]
  - DIASTOLIC DYSFUNCTION [None]
  - DYSPNOEA [None]
  - HYPERTENSION [None]
  - HYPONATRAEMIA [None]
  - IDIOPATHIC THROMBOCYTOPENIC PURPURA [None]
  - ILL-DEFINED DISORDER [None]
  - LEUKOCYTOSIS [None]
  - MAJOR DEPRESSION [None]
  - NAUSEA [None]
  - PAIN IN EXTREMITY [None]
  - PANIC ATTACK [None]
  - PARAPROTEINAEMIA [None]
  - PSYCHOMOTOR HYPERACTIVITY [None]
  - PULMONARY HYPERTENSION [None]
  - PYELONEPHRITIS ACUTE [None]
  - PYREXIA [None]
  - RADICULITIS CERVICAL [None]
  - RADICULITIS LUMBOSACRAL [None]
  - RECTAL HAEMORRHAGE [None]
  - RESPIRATORY FAILURE [None]
  - ROTATOR CUFF SYNDROME [None]
  - SNORING [None]
  - SOMNOLENCE [None]
  - SPINAL OSTEOARTHRITIS [None]
  - SUICIDAL IDEATION [None]
  - UMBILICAL HERNIA [None]
  - URINARY INCONTINENCE [None]
  - URINARY TRACT INFECTION [None]
  - VOMITING [None]
  - WHEEZING [None]
